FAERS Safety Report 6718982-1 (Version None)
Quarter: 2010Q2

REPORT INFORMATION
  Report Type: 
  Country: None (occurrence: None)
  Receive Date: 20100511
  Receipt Date: 20100503
  Transmission Date: 20101027
  Serious: Yes (Congenital Anomaly)
  Sender: FDA-Public Use
  Company Number: TR-BAYER-201024378GPV

PATIENT

DRUGS (2)
  1. YASMIN [Suspect]
     Indication: CONTRACEPTION
     Route: 064
     Dates: end: 20100101
  2. VOLTAREN [Interacting]
     Indication: MUSCLE SPASMS
     Dosage: FOR 1.5 WEEKS (NOS)
     Route: 064

REACTIONS (1)
  - FOETAL DAMAGE [None]
